FAERS Safety Report 7093637-5 (Version None)
Quarter: 2010Q4

REPORT INFORMATION
  Report Type: 
  Country: None (occurrence: None)
  Receive Date: 20101110
  Receipt Date: 20101029
  Transmission Date: 20110411
  Serious: Yes (Other)
  Sender: FDA-Public Use
  Company Number: RU-ROCHE-736748

PATIENT
  Age: 26 Year
  Sex: Male

DRUGS (2)
  1. MIRCERA [Suspect]
     Route: 058
     Dates: start: 20091101
  2. VITAMIN TAB [Concomitant]
     Dosage: DRUG NAME: VITAMINS

REACTIONS (1)
  - NEPHROLITHIASIS [None]
